FAERS Safety Report 5664961-5 (Version None)
Quarter: 2008Q1

REPORT INFORMATION
  Report Type: 
  Country: None (occurrence: None)
  Receive Date: 20080314
  Receipt Date: 20080305
  Transmission Date: 20080703
  Serious: Yes (Life-Threatening, Hospitalization, Other)
  Sender: FDA-Public Use
  Company Number: BE-ABBOTT-08P-013-0441072-00

PATIENT
  Sex: Female

DRUGS (9)
  1. KALETRA [Suspect]
     Indication: HIV INFECTION
     Dates: start: 20070626
  2. TENOFOVIR DISOPROXIL FUMARATE [Concomitant]
     Indication: HIV INFECTION
     Dates: start: 20070626, end: 20071122
  3. EMTRICITABINE [Concomitant]
     Indication: HIV INFECTION
     Dates: start: 20070626, end: 20071127
  4. PENTAMIDINE ISETHIONATE [Concomitant]
     Indication: DRUG USE FOR UNKNOWN INDICATION
     Dates: start: 20071115
  5. DIDANOSINE [Concomitant]
     Indication: HIV INFECTION
     Dates: start: 20071123, end: 20071127
  6. LAMIVUDINE [Concomitant]
     Indication: HIV INFECTION
     Dates: start: 20071128
  7. ABACAVIR SULFATE [Concomitant]
     Indication: HIV INFECTION
     Dates: start: 20071128
  8. ABACAVIR SULFATE/LAMIVUDINE [Concomitant]
     Indication: HIV INFECTION
     Dates: start: 20071219
  9. RANITIDINE [Concomitant]
     Indication: DRUG USE FOR UNKNOWN INDICATION
     Dates: start: 20071219

REACTIONS (11)
  - APPENDICECTOMY [None]
  - BLOOD DISORDER [None]
  - DIABETES MELLITUS [None]
  - GENERAL PHYSICAL CONDITION ABNORMAL [None]
  - HAEMOPTYSIS [None]
  - HERPES VIRUS INFECTION [None]
  - HYPOMAGNESAEMIA [None]
  - NEPHROTIC SYNDROME [None]
  - PANCYTOPENIA [None]
  - PNEUMONIA CYTOMEGALOVIRAL [None]
  - RETINOPATHY [None]
